FAERS Safety Report 5797131-0 (Version None)
Quarter: 2008Q3

REPORT INFORMATION
  Report Type: 
  Country: None (occurrence: None)
  Receive Date: 20080701
  Receipt Date: 20080623
  Transmission Date: 20090109
  Serious: Yes (Hospitalization, Congenital Anomaly, Other)
  Sender: FDA-Public Use
  Company Number: PHHY2008FR12412

PATIENT
  Sex: Female

DRUGS (4)
  1. TEGRETOL [Suspect]
     Dosage: MATERNAL DOSE: 200 MG/DAY
     Route: 064
  2. ANAFRANIL [Suspect]
     Dosage: MATERNAL DOSE: 100 MG/DAY
     Route: 064
  3. TERCIAN [Suspect]
     Route: 064
  4. LYSANXIA [Suspect]
     Dosage: MATERNAL DOSE: 1 DF/DAY
     Route: 064

REACTIONS (9)
  - ANOREXIA [None]
  - DRUG EXPOSURE DURING PREGNANCY [None]
  - FEEDING DISORDER NEONATAL [None]
  - HYDROCEPHALUS [None]
  - HYPOCALCAEMIA [None]
  - HYPOTONIA [None]
  - PREMATURE BABY [None]
  - RENAL APLASIA [None]
  - TACHYPNOEA [None]
